FAERS Safety Report 20475140 (Version 1)
Quarter: 2022Q1

REPORT INFORMATION
  Report Type: Spontaneous
  Country: US (occurrence: None)
  Receive Date: 20220214
  Receipt Date: 20220214
  Transmission Date: 20220423
  Serious: Yes (Life-Threatening, Disabling, Other)
  Sender: FDA-Public Use
  Company Number: None

PATIENT
  Age: 37 Year
  Sex: Male
  Weight: 101.25 kg

DRUGS (2)
  1. TORADOL [Suspect]
     Active Substance: KETOROLAC TROMETHAMINE
     Indication: Joint swelling
     Dosage: FREQUENCY : ONCE;?
     Route: 030
     Dates: start: 20180905, end: 20180905
  2. TORADOL [Suspect]
     Active Substance: KETOROLAC TROMETHAMINE
     Indication: Arthralgia

REACTIONS (7)
  - Muscle atrophy [None]
  - Sciatic nerve neuropathy [None]
  - Peripheral swelling [None]
  - Gait inability [None]
  - Memory impairment [None]
  - Dementia [None]
  - Neurotoxicity [None]

NARRATIVE: CASE EVENT DATE: 20180905
